FAERS Safety Report 9170780 (Version 1)
Quarter: 2013Q1

REPORT INFORMATION
  Report Type: Spontaneous
  Country: QA (occurrence: None)
  Receive Date: 20130312
  Receipt Date: 20130312
  Transmission Date: 20140127
  Serious: Yes (Hospitalization)
  Sender: FDA-Public Use
  Company Number: FK201300753

PATIENT
  Age: 51 Year
  Sex: Female

DRUGS (9)
  1. ETOPOSIDE (ETOPOSIDE) [Suspect]
     Indication: HODGKIN^S DISEASE
     Dosage: 40 MG/M2/DAY ON DAYS 1-4
     Dates: start: 20120423
  2. CYTARABINE [Suspect]
     Indication: HODGKIN^S DISEASE
     Dosage: 2000 MG/M2 ON DAY 5
     Dates: start: 20120423
  3. CISPLATIN [Suspect]
     Indication: HODGKIN^S DISEASE
     Dates: start: 20120423
  4. METHYLPREDNISOLONE [Suspect]
     Dosage: 500 MG/DAY ON DAY 1-4
  5. FUROSEMIDE [Suspect]
     Indication: HYPERTENSION
  6. SPIRONOLACTONE [Suspect]
     Indication: HYPERTENSION
  7. FILGRASTIM [Suspect]
  8. VANCOMYCIN (VANCOMYCIN) [Concomitant]
  9. PIPERACILLIN/TAZO- (PIP/TAZO) [Concomitant]

REACTIONS (5)
  - Hypophosphataemia [None]
  - Neutropenia [None]
  - Leukopenia [None]
  - Body temperature increased [None]
  - Blood potassium decreased [None]
